FAERS Safety Report 24417173 (Version 1)
Quarter: 2024Q4

REPORT INFORMATION
  Report Type: Spontaneous
  Country: US (occurrence: US)
  Receive Date: 20241009
  Receipt Date: 20241009
  Transmission Date: 20250115
  Serious: Yes (Hospitalization, Other)
  Sender: AMGEN
  Company Number: US-AMGEN-USASP2024194947

PATIENT
  Age: 64 Year
  Sex: Female

DRUGS (1)
  1. ADALIMUMAB [Suspect]
     Active Substance: ADALIMUMAB
     Indication: Rheumatoid arthritis
     Dosage: UNK
     Route: 065

REACTIONS (8)
  - Renal impairment [Unknown]
  - Sepsis [Unknown]
  - Histoplasmosis disseminated [Unknown]
  - Aspergillus infection [Unknown]
  - Pneumonia [Unknown]
  - Serum ferritin increased [Unknown]
  - Fungaemia [Unknown]
  - Cholestasis [Unknown]
